FAERS Safety Report 16390334 (Version 2)
Quarter: 2019Q2

REPORT INFORMATION
  Report Type: Spontaneous
  Country: CN (occurrence: CN)
  Receive Date: 20190604
  Receipt Date: 20190606
  Transmission Date: 20190711
  Serious: Yes (Other)
  Sender: FDA-Public Use
  Company Number: CN-ASTRAZENECA-2019SE80772

PATIENT
  Age: 29651 Day
  Sex: Male

DRUGS (10)
  1. IPRATROPIUM BROMIDE. [Concomitant]
     Active Substance: IPRATROPIUM BROMIDE
     Indication: CHRONIC OBSTRUCTIVE PULMONARY DISEASE
     Dosage: ONE BRANCH A TIME, AND THE PATIENT ONLY USED ONCE
     Route: 055
  2. PULMICORT RESPULES [Suspect]
     Active Substance: BUDESONIDE
     Indication: ASTHMA
     Dosage: 4.0MG UNKNOWN
     Route: 055
     Dates: start: 20190524, end: 20190524
  3. PULMICORT RESPULES [Suspect]
     Active Substance: BUDESONIDE
     Indication: COUGH
     Dosage: 4.0MG UNKNOWN
     Route: 055
     Dates: start: 20190524, end: 20190524
  4. SALBUTAMOL [Concomitant]
     Active Substance: ALBUTEROL
     Indication: ASTHMA
     Dosage: ONE BRANCH A TIME, AND THE PATIENT ONLY USED ONCE
     Route: 055
  5. PULMICORT RESPULES [Suspect]
     Active Substance: BUDESONIDE
     Indication: CHRONIC OBSTRUCTIVE PULMONARY DISEASE
     Dosage: 4.0MG UNKNOWN
     Route: 055
     Dates: start: 20190524, end: 20190524
  6. PULMICORT RESPULES [Suspect]
     Active Substance: BUDESONIDE
     Indication: CHRONIC OBSTRUCTIVE PULMONARY DISEASE
     Dosage: 4.0MG UNKNOWN
     Route: 055
     Dates: start: 20190524, end: 20190524
  7. SALBUTAMOL [Concomitant]
     Active Substance: ALBUTEROL
     Indication: CHRONIC OBSTRUCTIVE PULMONARY DISEASE
     Dosage: ONE BRANCH A TIME, AND THE PATIENT ONLY USED ONCE
     Route: 055
  8. IPRATROPIUM BROMIDE. [Concomitant]
     Active Substance: IPRATROPIUM BROMIDE
     Indication: ASTHMA
     Dosage: ONE BRANCH A TIME, AND THE PATIENT ONLY USED ONCE
     Route: 055
  9. SALBUTAMOL [Concomitant]
     Active Substance: ALBUTEROL
     Indication: COUGH
     Dosage: ONE BRANCH A TIME, AND THE PATIENT ONLY USED ONCE
     Route: 055
  10. IPRATROPIUM BROMIDE. [Concomitant]
     Active Substance: IPRATROPIUM BROMIDE
     Indication: COUGH
     Dosage: ONE BRANCH A TIME, AND THE PATIENT ONLY USED ONCE
     Route: 055

REACTIONS (2)
  - Asphyxia [Recovered/Resolved]
  - Respiratory arrest [Recovered/Resolved]

NARRATIVE: CASE EVENT DATE: 20190524
